FAERS Safety Report 7830965-7 (Version None)
Quarter: 2011Q4

REPORT INFORMATION
  Report Type: 
  Country: None (occurrence: None)
  Receive Date: 20111021
  Receipt Date: 20111018
  Transmission Date: 20120403
  Serious: No
  Sender: FDA-Public Use
  Company Number: US-B.I. PHARMACEUTICALS,INC./RIDGEFIELD-2011-BP-24519BP

PATIENT
  Sex: Female

DRUGS (3)
  1. PRILOSEC [Suspect]
     Indication: DYSPEPSIA
     Route: 048
     Dates: start: 20110917
  2. ZANTAC 150 [Suspect]
     Indication: DYSPEPSIA
     Dosage: 300 MG
     Route: 048
     Dates: start: 20110918
  3. ZANTAC 150 [Suspect]

REACTIONS (2)
  - DRUG INEFFECTIVE [None]
  - DIARRHOEA [None]
